FAERS Safety Report 22895764 (Version 2)
Quarter: 2023Q4

REPORT INFORMATION
  Report Type: Spontaneous
  Country: CA (occurrence: None)
  Receive Date: 20230901
  Receipt Date: 20231006
  Transmission Date: 20240109
  Serious: Yes (Other)
  Sender: FDA-Public Use
  Company Number: 2023A197504

PATIENT
  Age: 55 Year
  Sex: Female

DRUGS (2)
  1. FULVESTRANT [Suspect]
     Active Substance: FULVESTRANT
     Indication: Product used for unknown indication
  2. IBRANCE [Suspect]
     Active Substance: PALBOCICLIB
     Indication: Product used for unknown indication
     Dosage: CYCLICAL

REACTIONS (7)
  - Aortic arteriosclerosis [Unknown]
  - Arthritis [Unknown]
  - Bone disorder [Unknown]
  - Mediastinal fibrosis [Unknown]
  - Sinus disorder [Unknown]
  - Thyroid calcification [Unknown]
  - Insomnia [Unknown]
